FAERS Safety Report 18549159 (Version 1)
Quarter: 2020Q4

REPORT INFORMATION
  Report Type: Spontaneous
  Country: US (occurrence: US)
  Receive Date: 20201126
  Receipt Date: 20201126
  Transmission Date: 20210114
  Serious: No
  Sender: FDA-Public Use
  Company Number: US-ELI_LILLY_AND_COMPANY-US202011010937

PATIENT
  Age: 57 Year
  Sex: Female

DRUGS (8)
  1. BASAGLAR [Suspect]
     Active Substance: INSULIN GLARGINE
     Dosage: 16 U, DAILY(NIGHT)
     Route: 065
  2. NOVOLOG [Concomitant]
     Active Substance: INSULIN ASPART
     Indication: DIABETES MELLITUS
     Dosage: 5 U, BID(BREAKFAST AND LUNCH)
  3. BASAGLAR [Suspect]
     Active Substance: INSULIN GLARGINE
     Indication: DIABETES MELLITUS
     Dosage: 16 U, DAILY(NIGHT)
     Route: 065
     Dates: start: 20200917
  4. BASAGLAR [Suspect]
     Active Substance: INSULIN GLARGINE
     Dosage: 16 U, DAILY(NIGHT)
     Route: 065
  5. BASAGLAR [Suspect]
     Active Substance: INSULIN GLARGINE
     Indication: DIABETES MELLITUS
     Dosage: 16 U, DAILY(NIGHT)
     Route: 065
     Dates: start: 20200917
  6. NOVOLOG [Concomitant]
     Active Substance: INSULIN ASPART
     Dosage: 6 U, DAILY(DINNER)
  7. METFORMIN ER [Concomitant]
     Active Substance: METFORMIN HYDROCHLORIDE
     Indication: DIABETES MELLITUS
     Dosage: 1000 MG, BID
  8. NOVOLOG [Concomitant]
     Active Substance: INSULIN ASPART
     Dosage: 1 U, PRN(CORRECTION)

REACTIONS (3)
  - Injection site pain [Unknown]
  - Incorrect product administration duration [Unknown]
  - Blood glucose increased [Unknown]

NARRATIVE: CASE EVENT DATE: 20200917
